FAERS Safety Report 18655381 (Version 2)
Quarter: 2020Q4

REPORT INFORMATION
  Report Type: Report from Study
  Country: AR (occurrence: AR)
  Receive Date: 20201223
  Receipt Date: 20201229
  Transmission Date: 20210114
  Serious: Yes (Other)
  Sender: FDA-Public Use
  Company Number: NVSC2020AR226522

PATIENT
  Age: 29 Year
  Sex: Male

DRUGS (1)
  1. TASIGNA [Suspect]
     Active Substance: NILOTINIB
     Indication: CHRONIC MYELOID LEUKAEMIA
     Dosage: 600 MG, BID
     Route: 048
     Dates: start: 20190215

REACTIONS (7)
  - Infection [Recovering/Resolving]
  - Chest pain [Unknown]
  - Inappropriate schedule of product administration [Unknown]
  - Lymphadenopathy [Unknown]
  - Condition aggravated [Unknown]
  - Acne [Unknown]
  - Hypersensitivity [Unknown]

NARRATIVE: CASE EVENT DATE: 20200803
